FAERS Safety Report 22009478 (Version 1)
Quarter: 2023Q1

REPORT INFORMATION
  Report Type: Spontaneous
  Country: US (occurrence: US)
  Receive Date: 20230220
  Receipt Date: 20230220
  Transmission Date: 20230417
  Serious: Yes (Death, Hospitalization, Other)
  Sender: FDA-Public Use
  Company Number: US-AMGEN-USASP2023027804

PATIENT
  Age: 53 Year
  Sex: Male

DRUGS (3)
  1. CINACALCET HYDROCHLORIDE [Suspect]
     Active Substance: CINACALCET HYDROCHLORIDE
     Indication: Hyperparathyroidism primary
     Dosage: 30 MILLIGRAM
     Route: 065
  2. ZOLEDRONIC ACID [Concomitant]
     Active Substance: ZOLEDRONIC ACID
     Indication: Hyperparathyroidism primary
     Dosage: 4 MILLIGRAM (ONE TIME DOSE)
     Route: 065
  3. CALCITONIN [Concomitant]
     Active Substance: CALCITONIN
     Indication: Hyperparathyroidism primary
     Dosage: 100 UNIT, BID ON DAY 12
     Route: 065

REACTIONS (2)
  - Acute respiratory distress syndrome [Fatal]
  - Hypocalcaemia [Unknown]
